FAERS Safety Report 25214080 (Version 1)
Quarter: 2025Q2

REPORT INFORMATION
  Report Type: Spontaneous
  Country: SK (occurrence: SK)
  Receive Date: 20250418
  Receipt Date: 20250418
  Transmission Date: 20250717
  Serious: Yes (Hospitalization, Other)
  Sender: B BRAUN
  Company Number: SK-B.Braun Medical Inc.-2175118

PATIENT
  Age: 48 Year
  Sex: Male

DRUGS (5)
  1. METRONIDAZOLE [Suspect]
     Active Substance: METRONIDAZOLE
     Indication: Antibiotic therapy
  2. GENTAMICIN [Suspect]
     Active Substance: GENTAMICIN
  3. CLINDAMYCIN [Suspect]
     Active Substance: CLINDAMYCIN
  4. CIPROFLOXACIN [Suspect]
     Active Substance: CIPROFLOXACIN
  5. AUGMENTIN [Suspect]
     Active Substance: AMOXICILLIN\CLAVULANATE POTASSIUM

REACTIONS (10)
  - Renal impairment [Recovered/Resolved]
  - Blood bilirubin abnormal [Recovered/Resolved]
  - Hepatic function abnormal [Recovered/Resolved]
  - Hepatic cytolysis [Recovered/Resolved]
  - Drug-induced liver injury [Recovered/Resolved]
  - Aspartate aminotransferase increased [Recovered/Resolved]
  - Serum ferritin increased [Recovered/Resolved]
  - Sepsis [Unknown]
  - Alanine aminotransferase increased [Recovered/Resolved]
  - Still^s disease [Recovered/Resolved]
